FAERS Safety Report 15124088 (Version 2)
Quarter: 2018Q3

REPORT INFORMATION
  Report Type: Spontaneous
  Country: US (occurrence: US)
  Receive Date: 20180710
  Receipt Date: 20180823
  Transmission Date: 20181010
  Serious: No
  Sender: FDA-Public Use
  Company Number: US-GLENMARK PHARMACEUTICALS-2018GMK031688

PATIENT

DRUGS (1)
  1. URSODIOL TABLETS USP, 500 MG [Suspect]
     Active Substance: URSODIOL
     Indication: PRODUCT USED FOR UNKNOWN INDICATION
     Dosage: 250 MG, BID (HALF TABLET TWICE A DAY)
     Route: 048
     Dates: start: 201801

REACTIONS (3)
  - Product contamination physical [Unknown]
  - Product use complaint [Unknown]
  - No adverse event [Unknown]
